FAERS Safety Report 7333340-7 (Version None)
Quarter: 2011Q1

REPORT INFORMATION
  Report Type: 
  Country: None (occurrence: None)
  Receive Date: 20110304
  Receipt Date: 20110303
  Transmission Date: 20110831
  Serious: Yes (Disabling)
  Sender: FDA-Public Use
  Company Number: DK-PFIZER INC-2011047422

PATIENT
  Age: 47 Year
  Sex: Female

DRUGS (1)
  1. DEPO-MEDROL [Suspect]
     Indication: INJURY
     Dates: start: 20090101

REACTIONS (2)
  - PAIN [None]
  - DRUG INEFFECTIVE [None]
